FAERS Safety Report 20305617 (Version 32)
Quarter: 2025Q4

REPORT INFORMATION
  Report Type: Report from Study
  Country: US (occurrence: US)
  Receive Date: 20220106
  Receipt Date: 20251217
  Transmission Date: 20260118
  Serious: Yes (Hospitalization, Other)
  Sender: PFIZER
  Company Number: US-PFIZER INC-202101242590

PATIENT
  Age: 63 Year
  Sex: Female
  Weight: 72.57 kg

DRUGS (28)
  1. XELJANZ [Suspect]
     Active Substance: TOFACITINIB CITRATE
     Indication: Colitis
     Dosage: 5 G TABLET, 3 TABLET ONCE A DAY
     Route: 048
     Dates: start: 20180622
  2. XELJANZ [Suspect]
     Active Substance: TOFACITINIB CITRATE
     Indication: Colitis ulcerative
     Dosage: 10 MG
     Route: 048
     Dates: start: 20190322, end: 2019
  3. XELJANZ [Suspect]
     Active Substance: TOFACITINIB CITRATE
     Dosage: 5MG TABLET, TWO TABLETS IN THE MORNING AND ONE TABLET IN THE EVENING/5MG THREE TIMES A DAY
     Route: 048
     Dates: start: 201903
  4. XELJANZ [Suspect]
     Active Substance: TOFACITINIB CITRATE
     Dosage: 10 MG, TWICE DAILY
     Route: 048
     Dates: start: 20190906
  5. XELJANZ [Suspect]
     Active Substance: TOFACITINIB CITRATE
     Dosage: 10 MG AM AND CUTTING 10 MG INTO HALF PM/XELJANZ 5MG 2 TABLETS AM AND 1 TABLET PM
     Route: 048
  6. XELJANZ [Suspect]
     Active Substance: TOFACITINIB CITRATE
     Dosage: 2 TABLETS IN AM AND 1 TABLET AT PM/HS
     Route: 048
  7. XELJANZ [Suspect]
     Active Substance: TOFACITINIB CITRATE
     Dosage: 5MG THREE TIMES A DAY/5MG TID (THREE TIMES A DAY)
     Route: 048
  8. XELJANZ [Suspect]
     Active Substance: TOFACITINIB CITRATE
     Dosage: 15MG A DAY/5MG, 3 TABLET ONCE A DAY
     Route: 048
  9. XELJANZ [Suspect]
     Active Substance: TOFACITINIB CITRATE
     Dosage: 10MG IN THE MORNING AND 5MG IN THE EVENING
     Route: 048
  10. XELJANZ [Suspect]
     Active Substance: TOFACITINIB CITRATE
     Dosage: 10 MG
     Route: 048
  11. XELJANZ [Suspect]
     Active Substance: TOFACITINIB CITRATE
     Dosage: 5 MG
     Route: 048
  12. XELJANZ [Suspect]
     Active Substance: TOFACITINIB CITRATE
     Dosage: TAKE MEDICATION 2 IN THE MORNING AND 1 AT NIGHT
     Route: 048
  13. XELJANZ [Suspect]
     Active Substance: TOFACITINIB CITRATE
     Dosage: TAKE 3 TABLET BY MOUTH ONCE A DAY
     Route: 048
  14. XELJANZ [Suspect]
     Active Substance: TOFACITINIB CITRATE
     Dosage: 15MG DAILY
  15. AMLODIPINE [Concomitant]
     Active Substance: AMLODIPINE BESYLATE
     Dosage: UNK
  16. CRANBERRY [Concomitant]
     Active Substance: CRANBERRY
     Dosage: UNK
  17. CRESTOR [Concomitant]
     Active Substance: ROSUVASTATIN CALCIUM
     Dosage: UNK
  18. FISH OIL [Concomitant]
     Active Substance: FISH OIL
     Dosage: UNK
  19. FLUTICASONE PROPIONATE [Concomitant]
     Active Substance: FLUTICASONE PROPIONATE
     Dosage: UNK
  20. HYDROCORTISONE [Concomitant]
     Active Substance: HYDROCORTISONE
     Dosage: UNK
  21. INTRAROSA [Concomitant]
     Active Substance: PRASTERONE
     Dosage: UNK
  22. LEVOTHYROXINE [Concomitant]
     Active Substance: LEVOTHYROXINE
     Dosage: UNK
  23. LORAZEPAM [Concomitant]
     Active Substance: LORAZEPAM
     Dosage: UNK
  24. PENTASA [Concomitant]
     Active Substance: MESALAMINE
     Dosage: UNK
  25. PREDNISONE [Concomitant]
     Active Substance: PREDNISONE
     Dosage: UNK
  26. FLUTICASONE PROPIONATE [Concomitant]
     Active Substance: FLUTICASONE PROPIONATE
     Dosage: UNK
  27. ULTRA FLORA DIGEST [Concomitant]
     Dosage: UNK
  28. VITAMIN C [Concomitant]
     Active Substance: ASCORBIC ACID
     Dosage: UNK

REACTIONS (15)
  - Faecaloma [Recovered/Resolved]
  - Constipation [Unknown]
  - Sinusitis [Unknown]
  - Drug ineffective [Unknown]
  - Infection [Recovering/Resolving]
  - Malaise [Unknown]
  - Blood cholesterol increased [Recovered/Resolved]
  - Urinary tract infection [Unknown]
  - Fatigue [Recovered/Resolved]
  - Pelvic floor muscle weakness [Unknown]
  - Drug hypersensitivity [Unknown]
  - Diarrhoea [Unknown]
  - Product dose omission issue [Unknown]
  - Off label use [Unknown]
  - Nasopharyngitis [Unknown]

NARRATIVE: CASE EVENT DATE: 20180622
